FAERS Safety Report 22312091 (Version 1)
Quarter: 2023Q2

REPORT INFORMATION
  Report Type: Spontaneous
  Country: US (occurrence: US)
  Receive Date: 20230512
  Receipt Date: 20230512
  Transmission Date: 20230722
  Serious: Yes (Other)
  Sender: FDA-Public Use
  Company Number: US-AMGEN-USASP2023079343

PATIENT
  Age: 2 Year
  Sex: Female

DRUGS (7)
  1. CARFILZOMIB [Suspect]
     Active Substance: CARFILZOMIB
     Indication: Transplant rejection
     Dosage: 20 MILLIGRAM/SQ. METER, ON PTD 81, 83, 84; 90, 91; 100, 101
     Route: 065
  2. CARFILZOMIB [Suspect]
     Active Substance: CARFILZOMIB
     Indication: Off label use
  3. RITUXIMAB [Suspect]
     Active Substance: RITUXIMAB
     Indication: Transplant rejection
     Dosage: 375 MILLIGRAM/SQ. METER
     Route: 065
  4. RITUXIMAB [Suspect]
     Active Substance: RITUXIMAB
     Indication: Off label use
  5. BORTEZOMIB [Concomitant]
     Active Substance: BORTEZOMIB
     Indication: Exposure to communicable disease
     Dosage: 1.3 MILLIGRAM/SQ. METER
     Route: 065
  6. ISONIAZID [Concomitant]
     Active Substance: ISONIAZID
     Indication: Exposure to communicable disease
     Dosage: UNK
  7. METHYLPREDNISOLONE [Concomitant]
     Active Substance: METHYLPREDNISOLONE
     Indication: Product used for unknown indication
     Dosage: 15 MILLIGRAM/KILOGRAM
     Route: 042

REACTIONS (3)
  - Acute kidney injury [Unknown]
  - Donor specific antibody present [Unknown]
  - Off label use [Unknown]
